FAERS Safety Report 18740816 (Version 3)
Quarter: 2023Q2

REPORT INFORMATION
  Report Type: Report from Study
  Country: GT (occurrence: GT)
  Receive Date: 20210114
  Receipt Date: 20230527
  Transmission Date: 20230721
  Serious: Yes (Other)
  Sender: FDA-Public Use
  Company Number: NVSC2020GT331030

PATIENT
  Sex: Female
  Weight: 110 kg

DRUGS (5)
  1. DIOVAN [Suspect]
     Active Substance: VALSARTAN
     Indication: Hypertension
     Dosage: 320 MG (STARTED 5 YEARS AGO)
     Route: 048
  2. DIOVAN [Suspect]
     Active Substance: VALSARTAN
     Dosage: UNK
     Route: 065
  3. DIOVAN [Suspect]
     Active Substance: VALSARTAN
     Dosage: 0.5 DOSAGE FORM (320 MG), BY MOUTH
     Route: 048
     Dates: start: 2015
  4. VITAMIN B3 [Concomitant]
     Active Substance: NIACIN
     Indication: Product used for unknown indication
     Dosage: 1 DOSAGE FORM, QD (SEVERAL YEARS AGO)
     Route: 065
  5. CALCIUM [Concomitant]
     Active Substance: CALCIUM
     Indication: Product used for unknown indication
     Dosage: UNK
     Route: 065

REACTIONS (20)
  - COVID-19 [Recovered/Resolved with Sequelae]
  - Productive cough [Unknown]
  - Arthralgia [Unknown]
  - Pyrexia [Unknown]
  - Oropharyngeal discomfort [Unknown]
  - Alopecia [Recovered/Resolved]
  - Onychoclasis [Recovered/Resolved]
  - Chronic gastritis [Recovering/Resolving]
  - Abdominal discomfort [Recovering/Resolving]
  - Hunger [Recovering/Resolving]
  - Chills [Unknown]
  - Paraesthesia [Unknown]
  - Fatigue [Unknown]
  - Nausea [Unknown]
  - Duodenogastric reflux [Unknown]
  - Gallbladder disorder [Unknown]
  - Blood sodium decreased [Unknown]
  - Rash [Recovered/Resolved]
  - Dizziness [Unknown]
  - Wrong technique in product usage process [Unknown]

NARRATIVE: CASE EVENT DATE: 20150101
